FAERS Safety Report 5565325-5 (Version None)
Quarter: 2007Q4

REPORT INFORMATION
  Report Type: 
  Country: None (occurrence: None)
  Receive Date: 20071218
  Receipt Date: 20030910
  Transmission Date: 20080405
  Serious: Yes (Death, Life-Threatening)
  Sender: FDA-Public Use
  Company Number: JP-ROCHE-345114

PATIENT
  Age: 77 Year
  Sex: Female

DRUGS (7)
  1. TORSEMIDE [Suspect]
     Indication: ASCITES
     Route: 048
     Dates: start: 20030703, end: 20030720
  2. GLYSENNID [Concomitant]
     Dates: end: 20030720
  3. DEPAS [Concomitant]
     Dates: end: 20030720
  4. PREDONINE [Concomitant]
     Dates: start: 20030719, end: 20030722
  5. PREDNISOLONE [Concomitant]
     Dates: start: 20030718
  6. SOLDEM [Concomitant]
     Dates: start: 20030718, end: 20030722
  7. LASIX [Concomitant]
     Route: 041
     Dates: start: 20030719, end: 20030722

REACTIONS (3)
  - NEOPLASM MALIGNANT [None]
  - SHOCK [None]
  - THROMBOCYTOPENIA [None]
